FAERS Safety Report 8012046-5 (Version None)
Quarter: 2011Q4

REPORT INFORMATION
  Report Type: 
  Country: None (occurrence: None)
  Receive Date: 20111228
  Receipt Date: 20111221
  Transmission Date: 20120403
  Serious: Yes (Other)
  Sender: FDA-Public Use
  Company Number: FR-GLAXOSMITHKLINE-B0771267A

PATIENT
  Sex: Female
  Weight: 64 kg

DRUGS (3)
  1. PANTOPRAZOLE [Concomitant]
  2. COZAAR [Concomitant]
  3. ARIXTRA [Suspect]
     Indication: DEEP VEIN THROMBOSIS
     Dosage: 7.5MG PER DAY
     Route: 058
     Dates: start: 20111130, end: 20111216

REACTIONS (2)
  - ANAEMIA [None]
  - SUBCUTANEOUS HAEMATOMA [None]
